FAERS Safety Report 13816381 (Version 1)
Quarter: 2017Q3

REPORT INFORMATION
  Report Type: Spontaneous
  Country: US (occurrence: US)
  Receive Date: 20170731
  Receipt Date: 20170731
  Transmission Date: 20171127
  Serious: Yes (Disabling, Other)
  Sender: FDA-Public Use
  Company Number: US-SA-2017SA019808

PATIENT
  Age: 58 Year
  Sex: Female

DRUGS (1)
  1. AMBIEN CR [Suspect]
     Active Substance: ZOLPIDEM TARTRATE
     Indication: SLEEP DISORDER
     Dosage: 6 YEARS AGO
     Route: 048

REACTIONS (2)
  - Drug dependence [Unknown]
  - Dyspnoea [Not Recovered/Not Resolved]
